FAERS Safety Report 7672510-5 (Version None)
Quarter: 2011Q3

REPORT INFORMATION
  Report Type: 
  Country: None (occurrence: None)
  Receive Date: 20110809
  Receipt Date: 20110725
  Transmission Date: 20111222
  Serious: Yes (Other)
  Sender: FDA-Public Use
  Company Number: US-WATSON-2011-12139

PATIENT
  Age: 91 Year
  Sex: Male

DRUGS (2)
  1. LOVASTATIN [Suspect]
     Indication: PRODUCT USED FOR UNKNOWN INDICATION
     Dosage: 40 MG, DAILY
  2. DANAZOL [Suspect]
     Indication: PRODUCT USED FOR UNKNOWN INDICATION
     Dosage: 400 MG, DAILY

REACTIONS (3)
  - RENAL IMPAIRMENT [None]
  - RHABDOMYOLYSIS [None]
  - DRUG INTERACTION [None]
